FAERS Safety Report 10560146 (Version 1)
Quarter: 2014Q4

REPORT INFORMATION
  Report Type: Spontaneous
  Country: US (occurrence: US)
  Receive Date: 20141103
  Receipt Date: 20141103
  Transmission Date: 20150529
  Serious: No
  Sender: FDA-Public Use
  Company Number: US-BAYER-2014-159513

PATIENT
  Age: 82 Year
  Sex: Female
  Weight: 60.32 kg

DRUGS (2)
  1. ALEVE [Suspect]
     Active Substance: NAPROXEN SODIUM
     Indication: ARTHRALGIA
     Dosage: 1 DF, QD
     Route: 048
     Dates: start: 201407
  2. BAYER GENUINE ASPIRIN [Suspect]
     Active Substance: ASPIRIN
     Indication: ANALGESIC THERAPY
     Dosage: 2 DF, PRN
     Route: 048
     Dates: end: 20141024

REACTIONS (5)
  - Hallucination, auditory [Recovered/Resolved]
  - Tremor [Recovered/Resolved]
  - Incorrect drug administration duration [None]
  - Wrong technique in drug usage process [None]
  - Drug ineffective [None]

NARRATIVE: CASE EVENT DATE: 201407
